FAERS Safety Report 9165756 (Version 1)
Quarter: 2013Q1

REPORT INFORMATION
  Report Type: Spontaneous
  Country: ES (occurrence: ES)
  Receive Date: 20130315
  Receipt Date: 20130315
  Transmission Date: 20140127
  Serious: Yes (Death, Other)
  Sender: FDA-Public Use
  Company Number: PHHY2013ES025418

PATIENT
  Age: 73 Year
  Sex: Female

DRUGS (4)
  1. ENOXAPARIN [Suspect]
     Indication: PULMONARY EMBOLISM
     Dosage: 60 MG, Q12H
     Route: 058
  2. HEPARIN AND PREPARATIONS [Suspect]
     Indication: PULMONARY EMBOLISM
     Dosage: 5000 IU, UNK
     Route: 058
  3. ACENOCOUMAROL [Concomitant]
  4. RIVAROXABAN [Concomitant]

REACTIONS (3)
  - Death [Fatal]
  - Dermatitis bullous [Unknown]
  - Haemorrhage [Unknown]
